FAERS Safety Report 8632011 (Version 2)
Quarter: 2012Q4

REPORT INFORMATION
  Report Type: 
  Country: MX (occurrence: MX)
  Receive Date: 20120625
  Receipt Date: 20121024
  Transmission Date: 20130627
  Serious: Yes (Hospitalization, Other)
  Sender: FDA-Public Use
  Company Number: PHHY2012MX053231

PATIENT
  Sex: Female

DRUGS (5)
  1. FORADIL [Suspect]
     Indication: ASTHMA
     Dosage: 3 DF, three tab daily
     Dates: start: 201010
  2. COMBIVENT [Concomitant]
     Indication: ASTHMA
     Dosage: 3 DF, three applications daily
     Dates: start: 201110
  3. COMBIVENT [Concomitant]
     Dosage: 3 DF, three applications daily
     Dates: start: 201204
  4. OMEPRAZOLE [Concomitant]
     Indication: GASTRITIS
     Dosage: 3 DF, three tab daily
     Dates: start: 201002
  5. METICORTEN [Concomitant]
     Indication: GASTRITIS
     Dosage: 1 DF, QD
     Dates: start: 201205

REACTIONS (10)
  - Convulsion [Not Recovered/Not Resolved]
  - Loss of consciousness [Not Recovered/Not Resolved]
  - Depression [Not Recovered/Not Resolved]
  - Faecal incontinence [Not Recovered/Not Resolved]
  - Feeling of despair [Not Recovered/Not Resolved]
  - Nausea [Not Recovered/Not Resolved]
  - Asthma [Not Recovered/Not Resolved]
  - Agitation [Unknown]
  - Drug ineffective [Unknown]
  - Feeling abnormal [Unknown]
